FAERS Safety Report 7485783-9 (Version None)
Quarter: 2011Q2

REPORT INFORMATION
  Report Type: 
  Country: None (occurrence: None)
  Receive Date: 20110517
  Receipt Date: 20091122
  Transmission Date: 20111010
  Serious: Yes (Death, Other)
  Sender: FDA-Public Use
  Company Number: US-BAYER-200940076NA

PATIENT
  Age: 56 Year
  Sex: Male
  Weight: 50 kg

DRUGS (11)
  1. DOPAMINE HCL [Concomitant]
     Dosage: UNK
     Dates: start: 20060614
  2. LISINOPRIL [Concomitant]
     Dosage: 10 MG, QD
     Route: 048
     Dates: start: 20060209
  3. COREG [Concomitant]
     Dosage: 3.125 MG, BID
     Route: 048
     Dates: start: 20060209
  4. HEPARIN [Concomitant]
     Dosage: UNK
     Dates: start: 20060614
  5. NITROGLYCERIN [Concomitant]
     Dosage: UNK
     Dates: start: 20060614
  6. PROTAMINE SULFATE [Concomitant]
     Dosage: UNK
     Dates: start: 20060614
  7. LASIX [Concomitant]
     Dosage: 80 MG, QD
     Route: 048
     Dates: start: 20060320
  8. TRASYLOL [Suspect]
     Indication: MITRAL VALVE REPAIR
     Dosage: 200 ML PUMP PRIME
     Route: 042
     Dates: start: 20060614, end: 20060614
  9. INSULIN HUMAN [Concomitant]
     Dosage: 100U/ML, 45 UNITS/DAY
     Route: 058
     Dates: start: 20060522
  10. VERSED [Concomitant]
     Dosage: UNK
     Dates: start: 20060614
  11. DOBUTAMINE HYDROCHLORIDE [Concomitant]
     Dosage: UNK
     Dates: start: 20060614

REACTIONS (13)
  - MULTI-ORGAN FAILURE [None]
  - RENAL IMPAIRMENT [None]
  - ANXIETY [None]
  - PAIN [None]
  - UNEVALUABLE EVENT [None]
  - FEAR [None]
  - INJURY [None]
  - RENAL FAILURE [None]
  - RENAL INJURY [None]
  - EMOTIONAL DISTRESS [None]
  - DEATH [None]
  - ANHEDONIA [None]
  - STRESS [None]
